FAERS Safety Report 8195498 (Version 6)
Quarter: 2013Q3

REPORT INFORMATION
  Report Type: Spontaneous
  Country: US (occurrence: US)
  Receive Date: 20111024
  Receipt Date: 20130824
  Transmission Date: 20140515
  Serious: Yes (Other)
  Sender: FDA-Public Use
  Company Number: US-ROCHE-1006345

PATIENT
  Age: 18 Year
  Sex: Male
  Weight: 86.26 kg

DRUGS (2)
  1. ACCUTANE [Suspect]
     Indication: ACNE
     Route: 065
     Dates: start: 20040401, end: 200409
  2. ACCUTANE [Suspect]
     Route: 065
     Dates: end: 20041118

REACTIONS (7)
  - Crohn^s disease [Unknown]
  - Proctitis ulcerative [Unknown]
  - Inflammatory bowel disease [Unknown]
  - Irritable bowel syndrome [Unknown]
  - Anxiety [Unknown]
  - Intestinal haemorrhage [Unknown]
  - Acne [Unknown]
